FAERS Safety Report 4325794-5 (Version None)
Quarter: 2004Q1

REPORT INFORMATION
  Report Type: 
  Country: None (occurrence: None)
  Receive Date: 20040329
  Receipt Date: 20040319
  Transmission Date: 20041129
  Serious: Yes (Hospitalization)
  Sender: FDA-Public Use
  Company Number: FR-ROCHE-361997

PATIENT
  Age: 32 Year
  Sex: Female

DRUGS (11)
  1. LOXEN [Suspect]
     Indication: TOCOLYSIS
     Route: 042
     Dates: start: 20030212, end: 20030217
  2. LOXEN [Suspect]
     Dosage: ORAL.
     Route: 042
     Dates: start: 20030218, end: 20030219
  3. LOXEN [Suspect]
     Dosage: INTRAVENOUS.
     Route: 042
     Dates: start: 20030317, end: 20030324
  4. SALBUMOL [Suspect]
     Indication: DRUG USE FOR UNKNOWN INDICATION
     Route: 054
     Dates: start: 20030315, end: 20030323
  5. BETAMETHASONE [Concomitant]
     Dates: start: 20030211, end: 20030320
  6. SPASFON [Concomitant]
  7. BROMAZEPAM [Concomitant]
  8. AUGMENTIN [Concomitant]
     Dates: start: 20030213
  9. FERROUS SULFATE TAB [Concomitant]
  10. FOLIC ACID [Concomitant]
  11. HEPARIN-FRACTION, SODIUM SALT [Concomitant]

REACTIONS (10)
  - BREATH SOUNDS DECREASED [None]
  - ENTEROCOCCAL INFECTION [None]
  - LUNG CONSOLIDATION [None]
  - LUNG CREPITATION [None]
  - METRORRHAGIA [None]
  - PLEURAL EFFUSION [None]
  - PULMONARY ARTERIAL PRESSURE INCREASED [None]
  - RESPIRATORY DISTRESS [None]
  - URINARY TRACT INFECTION [None]
  - VASODILATATION [None]
